FAERS Safety Report 12457725 (Version 1)
Quarter: 2016Q2

REPORT INFORMATION
  Report Type: Spontaneous
  Country: GB (occurrence: GB)
  Receive Date: 20160611
  Receipt Date: 20160611
  Transmission Date: 20160815
  Serious: Yes (Other)
  Sender: FDA-Public Use
  Company Number: GB-ACCORD-041288

PATIENT
  Age: 60 Year
  Sex: Female
  Weight: 95.25 kg

DRUGS (6)
  1. AMITRIPTYLINE ACCORD [Suspect]
     Active Substance: AMITRIPTYLINE
     Indication: NEURALGIA
     Route: 048
     Dates: start: 20160401
  2. CO-DYDRAMOL [Concomitant]
     Active Substance: ACETAMINOPHEN\DIHYDROCODEINE
  3. FENTANYL. [Concomitant]
     Active Substance: FENTANYL
  4. FUROSEMIDE. [Concomitant]
     Active Substance: FUROSEMIDE
  5. THYROXINE [Concomitant]
     Active Substance: LEVOTHYROXINE
  6. PARACETAMOL [Concomitant]
     Active Substance: ACETAMINOPHEN

REACTIONS (6)
  - Pain in extremity [Not Recovered/Not Resolved]
  - Faeces discoloured [Recovering/Resolving]
  - Peripheral swelling [Not Recovered/Not Resolved]
  - Liver disorder [Recovering/Resolving]
  - Pruritus [Not Recovered/Not Resolved]
  - Off label use [Unknown]

NARRATIVE: CASE EVENT DATE: 20160401
